FAERS Safety Report 9975934 (Version 2)
Quarter: 2014Q2

REPORT INFORMATION
  Report Type: Report from Study
  Country: CA (occurrence: CA)
  Receive Date: 20140306
  Receipt Date: 20140404
  Transmission Date: 20141212
  Serious: Yes (Hospitalization, Other)
  Sender: FDA-Public Use
  Company Number: CA-ABBVIE-14P-028-1207335-00

PATIENT
  Age: 31 Year
  Sex: Female
  Weight: 54.93 kg

DRUGS (2)
  1. HUMIRA [Suspect]
     Indication: CROHN^S DISEASE
     Route: 058
     Dates: start: 20130819, end: 20131209
  2. HUMIRA [Suspect]
     Route: 058
     Dates: start: 20131209, end: 20140226

REACTIONS (2)
  - Intestinal stenosis [Not Recovered/Not Resolved]
  - Intestinal obstruction [Recovered/Resolved]
